FAERS Safety Report 8831887 (Version 1)
Quarter: 2012Q4

REPORT INFORMATION
  Report Type: 
  Country: US (occurrence: US)
  Receive Date: 20121009
  Receipt Date: 20121009
  Transmission Date: 20130627
  Serious: No
  Sender: FDA-Public Use
  Company Number: US-ASTRAZENECA-2012SE73876

PATIENT
  Age: 52 Year
  Sex: Female
  Weight: 101.6 kg

DRUGS (2)
  1. NEXIUM [Suspect]
     Indication: GASTROOESOPHAGEAL REFLUX DISEASE
     Route: 048
  2. OMEPRAZOLE [Suspect]
     Indication: GASTROOESOPHAGEAL REFLUX DISEASE
     Route: 048
     Dates: start: 2012

REACTIONS (9)
  - Asthma [Unknown]
  - Scleroderma [Unknown]
  - Diabetes mellitus [Unknown]
  - Hypertension [Unknown]
  - Irritable bowel syndrome [Unknown]
  - Abdominal pain upper [Unknown]
  - Drug dose omission [Unknown]
  - Intentional drug misuse [Unknown]
  - Drug ineffective [Unknown]
